FAERS Safety Report 25807738 (Version 1)
Quarter: 2025Q3

REPORT INFORMATION
  Report Type: Spontaneous
  Country: US (occurrence: None)
  Receive Date: 20250916
  Receipt Date: 20250916
  Transmission Date: 20251021
  Serious: Yes (Hospitalization)
  Sender: FDA-CTU
  Company Number: None

PATIENT
  Age: 60 Year
  Sex: Female

DRUGS (1)
  1. SKYRIZI [Suspect]
     Active Substance: RISANKIZUMAB-RZAA
     Indication: Psoriasis
     Dosage: OTHER STRENGTH : 150MG/ML PEN, 150M;?FREQUENCY : MONTHLY;?
     Route: 058

REACTIONS (1)
  - Nerve compression [None]

NARRATIVE: CASE EVENT DATE: 20250822
